FAERS Safety Report 12920813 (Version 1)
Quarter: 2016Q4

REPORT INFORMATION
  Report Type: Spontaneous
  Country: US (occurrence: US)
  Receive Date: 20161106
  Receipt Date: 20161106
  Transmission Date: 20170207
  Serious: Yes (Death, Hospitalization)
  Sender: FDA-Public Use
  Company Number: None

PATIENT
  Age: 69 Year
  Sex: Male
  Weight: 72.64 kg

DRUGS (12)
  1. OXYCOTIN [Concomitant]
  2. MYCELEX [Concomitant]
     Active Substance: CLOTRIMAZOLE
  3. PROTONIX [Concomitant]
     Active Substance: PANTOPRAZOLE SODIUM
  4. WARFARIN [Concomitant]
     Active Substance: WARFARIN
  5. VITAMIN C [Concomitant]
     Active Substance: ASCORBIC ACID
  6. SPS [Suspect]
     Active Substance: SODIUM POLYSTYRENE SULFONATE
     Indication: BLOOD POTASSIUM INCREASED
     Route: 048
     Dates: start: 20160628, end: 20160628
  7. AMIODARONE [Concomitant]
     Active Substance: AMIODARONE
  8. L-GLUTAMINE [Concomitant]
  9. VIT B1 [Concomitant]
     Active Substance: THIAMINE
  10. VITAMIN D3 [Concomitant]
     Active Substance: CHOLECALCIFEROL
  11. ACYCLOVIR. [Concomitant]
     Active Substance: ACYCLOVIR
  12. MAGNESIUM OXIDE. [Concomitant]
     Active Substance: MAGNESIUM OXIDE

REACTIONS (2)
  - Renal disorder [None]
  - Constipation [None]

NARRATIVE: CASE EVENT DATE: 20160628
